FAERS Safety Report 8218136-6 (Version None)
Quarter: 2012Q1

REPORT INFORMATION
  Report Type: 
  Country: None (occurrence: None)
  Receive Date: 20120316
  Receipt Date: 20120316
  Transmission Date: 20120608
  Serious: Yes (Hospitalization)
  Sender: FDA-Public Use
  Company Number: None

PATIENT
  Age: 73 Year
  Sex: Male
  Weight: 118 kg

DRUGS (1)
  1. BETAPACE [Suspect]
     Dosage: 80MG BID PO  ? WAS ON IT AT HOME
     Route: 048

REACTIONS (3)
  - PNEUMONIA [None]
  - ASTHENIA [None]
  - SUDDEN CARDIAC DEATH [None]
